FAERS Safety Report 16967320 (Version 1)
Quarter: 2019Q4

REPORT INFORMATION
  Report Type: Spontaneous
  Country: US (occurrence: US)
  Receive Date: 20190910
  Receipt Date: 20190910
  Transmission Date: 20200122
  Serious: Yes (Hospitalization)
  Sender: FDA-Public Use
  Company Number: None

PATIENT
  Age: 45 Year
  Sex: Male
  Weight: 122 kg

DRUGS (1)
  1. METFORMIN [Suspect]
     Active Substance: METFORMIN HYDROCHLORIDE
     Indication: DIABETES MELLITUS
     Route: 048
     Dates: start: 20181024, end: 20181126

REACTIONS (6)
  - Tachycardia [None]
  - Diarrhoea [None]
  - Blood lactic acid increased [None]
  - Dehydration [None]
  - Hypotension [None]
  - Therapy cessation [None]

NARRATIVE: CASE EVENT DATE: 20181126
